FAERS Safety Report 6665294-0 (Version None)
Quarter: 2010Q1

REPORT INFORMATION
  Report Type: 
  Country: None (occurrence: None)
  Receive Date: 20100331
  Receipt Date: 20100314
  Transmission Date: 20100710
  Serious: Yes (Death)
  Sender: FDA-Public Use
  Company Number: A0850364A

PATIENT
  Age: 71 Year
  Sex: Male

DRUGS (1)
  1. ASPIRIN + CAFFEINE + PARACETAMOL POWDER (ACETAMINOPHEN + ASPIRIN +) [Suspect]
     Indication: HEADACHE
     Dosage: ORAL
     Route: 048

REACTIONS (9)
  - BRAIN INJURY [None]
  - COMA [None]
  - DIZZINESS [None]
  - FEELING ABNORMAL [None]
  - GASTRIC HAEMORRHAGE [None]
  - HEPATIC HAEMORRHAGE [None]
  - MEMORY IMPAIRMENT [None]
  - RECTAL HAEMORRHAGE [None]
  - VIRAL INFECTION [None]
